FAERS Safety Report 7658941-8 (Version None)
Quarter: 2011Q3

REPORT INFORMATION
  Report Type: 
  Country: None (occurrence: None)
  Receive Date: 20110805
  Receipt Date: 20110802
  Transmission Date: 20111222
  Serious: Yes (Death)
  Sender: FDA-Public Use
  Company Number: CA-PFIZER INC-2011167212

PATIENT
  Age: 2 Month
  Sex: Male

DRUGS (1)
  1. EFFEXOR [Suspect]
     Dosage: UNKNOWN
     Route: 064

REACTIONS (3)
  - MATERNAL DRUGS AFFECTING FOETUS [None]
  - MATERNAL EXPOSURE DURING PREGNANCY [None]
  - DEATH [None]
